FAERS Safety Report 9297071 (Version 1)
Quarter: 2013Q2

REPORT INFORMATION
  Report Type: Report from Study
  Country: FR (occurrence: FR)
  Receive Date: 20130518
  Receipt Date: 20130518
  Transmission Date: 20140414
  Serious: Yes (Life-Threatening, Hospitalization)
  Sender: FDA-Public Use
  Company Number: FR-BAXTER-2013BAX017755

PATIENT
  Age: 63 Year
  Sex: Male
  Weight: 97 kg

DRUGS (11)
  1. ENDOXAN 50 MG, COMPRIM? ENROB? [Suspect]
     Indication: CHRONIC LYMPHOCYTIC LEUKAEMIA
     Route: 048
     Dates: start: 20120222
  2. ENDOXAN 50 MG, COMPRIM? ENROB? [Suspect]
     Route: 042
     Dates: start: 20120713
  3. RITUXIMAB [Suspect]
     Indication: CHRONIC LYMPHOCYTIC LEUKAEMIA
     Dosage: PREPHASE
     Route: 042
     Dates: start: 20120130
  4. RITUXIMAB [Suspect]
     Route: 041
     Dates: start: 20120221
  5. RITUXIMAB [Suspect]
     Route: 041
     Dates: start: 20120710
  6. FLUDARABINE [Suspect]
     Indication: CHRONIC LYMPHOCYTIC LEUKAEMIA
     Route: 048
     Dates: start: 20120222
  7. FLUDARABINE [Suspect]
     Route: 048
     Dates: start: 20120713
  8. ZELITREX [Concomitant]
     Indication: PROPHYLAXIS
     Route: 048
     Dates: start: 20120131
  9. LEDERFOLINE [Concomitant]
     Indication: ANAEMIA PROPHYLAXIS
     Route: 048
     Dates: start: 20121031
  10. CLARITYNE [Concomitant]
     Indication: PRURITUS
     Route: 048
     Dates: start: 20120710
  11. GRANOCYTE [Concomitant]
     Indication: NEUTROPENIA
     Route: 058
     Dates: start: 20121015

REACTIONS (5)
  - Pancytopenia [Not Recovered/Not Resolved]
  - Pneumonia [Not Recovered/Not Resolved]
  - Influenza [Recovered/Resolved]
  - Superinfection bacterial [Recovered/Resolved]
  - Hypoxia [Not Recovered/Not Resolved]
